FAERS Safety Report 4943810-4 (Version None)
Quarter: 2006Q1

REPORT INFORMATION
  Report Type: 
  Country: None (occurrence: None)
  Receive Date: 20060310
  Receipt Date: 20060227
  Transmission Date: 20060701
  Serious: Yes (Other)
  Sender: FDA-Public Use
  Company Number: 2006029219

PATIENT

DRUGS (2)
  1. VFEND [Suspect]
     Indication: ILL-DEFINED DISORDER
     Dosage: 400 MG, ORAL
     Route: 048
     Dates: start: 20060217, end: 20060221
  2. PREDNISOLONE [Concomitant]

REACTIONS (4)
  - HALLUCINATION, AUDITORY [None]
  - HALLUCINATION, VISUAL [None]
  - HEART RATE INCREASED [None]
  - STUPOR [None]
